FAERS Safety Report 9470713 (Version 1)
Quarter: 2013Q3

REPORT INFORMATION
  Report Type: Spontaneous
  Country: US (occurrence: US)
  Receive Date: 20130822
  Receipt Date: 20130822
  Transmission Date: 20140515
  Serious: No
  Sender: FDA-Public Use
  Company Number: US-PFIZER INC-2013241705

PATIENT
  Age: 72 Year
  Sex: Male

DRUGS (10)
  1. SUTENT [Suspect]
     Indication: RENAL CANCER
     Dosage: 50 MG, UNK
     Dates: start: 20130802
  2. ASPIRIN LOW DOSE [Concomitant]
     Dosage: UNK
  3. FISH OIL [Concomitant]
     Dosage: UNK
  4. GLIPIZIDE [Concomitant]
     Dosage: UNK
  5. LISINOPRIL [Concomitant]
     Dosage: UNK
  6. METFORMIN HYDROCHLORIDE [Concomitant]
     Dosage: UNK
  7. OXYCODONE HYDROCHLORIDE [Concomitant]
     Dosage: UNK
  8. PEPTO-BISMOL [Concomitant]
     Dosage: UNK
  9. PROMETHAZINE HYDROCHLORIDE [Concomitant]
     Dosage: UNK
  10. SIMVASTATIN [Concomitant]
     Dosage: UNK

REACTIONS (1)
  - Nausea [Unknown]
